FAERS Safety Report 9104251 (Version 1)
Quarter: 2013Q1

REPORT INFORMATION
  Report Type: Spontaneous
  Country: US (occurrence: US)
  Receive Date: 20130219
  Receipt Date: 20130219
  Transmission Date: 20140127
  Serious: Yes (Death, Other)
  Sender: FDA-Public Use
  Company Number: PHHY2013US015279

PATIENT
  Sex: 0

DRUGS (4)
  1. NILOTINIB [Suspect]
     Route: 048
  2. BOSENTAN [Concomitant]
  3. SILDENAFIL [Concomitant]
  4. TREPROSTINIL [Concomitant]

REACTIONS (4)
  - Thoracic haemorrhage [Fatal]
  - Tricuspid valve incompetence [Unknown]
  - Cardiac index decreased [Unknown]
  - Right ventricular dysfunction [Unknown]
